FAERS Safety Report 13339064 (Version 2)
Quarter: 2017Q2

REPORT INFORMATION
  Report Type: Spontaneous
  Country: US (occurrence: US)
  Receive Date: 20170315
  Receipt Date: 20170519
  Transmission Date: 20170830
  Serious: Yes (Other)
  Sender: FDA-Public Use
  Company Number: US-AMGEN-USASP2017036894

PATIENT
  Sex: Female

DRUGS (1)
  1. PROLIA [Suspect]
     Active Substance: DENOSUMAB
     Indication: PRODUCT USED FOR UNKNOWN INDICATION
     Dosage: UNK
     Route: 065

REACTIONS (31)
  - Enuresis [Unknown]
  - Tooth disorder [Unknown]
  - Injection site swelling [Unknown]
  - Muscle spasms [Unknown]
  - Chronic obstructive pulmonary disease [Unknown]
  - Impaired healing [Unknown]
  - Gingival disorder [Unknown]
  - Extraocular muscle paresis [Unknown]
  - Rectal fissure [Unknown]
  - Pain [Unknown]
  - Muscular weakness [Unknown]
  - Upper respiratory tract infection [Unknown]
  - Sjogren^s syndrome [Unknown]
  - Injection site pruritus [Unknown]
  - Depression [Unknown]
  - Skin ulcer [Unknown]
  - Gastrooesophageal reflux disease [Unknown]
  - Insomnia [Unknown]
  - Injury [Unknown]
  - Anxiety [Unknown]
  - Loose tooth [Unknown]
  - Weight increased [Unknown]
  - Inflammation [Unknown]
  - Tinnitus [Unknown]
  - Diarrhoea [Unknown]
  - Fluid retention [Unknown]
  - Bone pain [Unknown]
  - Injection site pain [Unknown]
  - Malaise [Unknown]
  - Pruritus [Unknown]
  - Urinary tract infection [Unknown]
